FAERS Safety Report 8154973-4 (Version None)
Quarter: 2012Q1

REPORT INFORMATION
  Report Type: 
  Country: None (occurrence: None)
  Receive Date: 20120221
  Receipt Date: 20120217
  Transmission Date: 20120608
  Serious: Yes (Death, Hospitalization, Other)
  Sender: FDA-Public Use
  Company Number: PHEH2012US003412

PATIENT
  Sex: Female

DRUGS (2)
  1. VICODIN [Suspect]
     Dosage: UNK UKN, UNK
  2. GILENYA [Suspect]
     Indication: RELAPSING-REMITTING MULTIPLE SCLEROSIS
     Dosage: 0.5 MG, QD
     Route: 048
     Dates: start: 20110929

REACTIONS (14)
  - MENTAL STATUS CHANGES [None]
  - CONFUSIONAL STATE [None]
  - FALL [None]
  - JOINT INJURY [None]
  - BLOOD LACTIC ACID INCREASED [None]
  - TOXICITY TO VARIOUS AGENTS [None]
  - TOXIC ENCEPHALOPATHY [None]
  - SOMNOLENCE [None]
  - HEPATIC FUNCTION ABNORMAL [None]
  - HEPATIC ENZYME INCREASED [None]
  - OXYGEN SATURATION DECREASED [None]
  - ASPARTATE AMINOTRANSFERASE INCREASED [None]
  - ALANINE AMINOTRANSFERASE INCREASED [None]
  - BLOOD CREATINE PHOSPHOKINASE INCREASED [None]
